FAERS Safety Report 18466250 (Version 1)
Quarter: 2020Q4

REPORT INFORMATION
  Report Type: Spontaneous
  Country: US (occurrence: US)
  Receive Date: 20201104
  Receipt Date: 20201104
  Transmission Date: 20210114
  Serious: Yes (Other)
  Sender: FDA-Public Use
  Company Number: US-PURDUE-USA-2020-0155811

PATIENT

DRUGS (1)
  1. OXYCONTIN [Suspect]
     Active Substance: OXYCODONE HYDROCHLORIDE
     Indication: PAIN
     Dosage: UNK
     Route: 048

REACTIONS (8)
  - Vomiting [Unknown]
  - Feeling cold [Unknown]
  - Drug dependence [Unknown]
  - Sleep disorder [Unknown]
  - Hyperhidrosis [Unknown]
  - Mood swings [Unknown]
  - Drug ineffective [Unknown]
  - Drug withdrawal syndrome [Unknown]
